FAERS Safety Report 7928872-4 (Version None)
Quarter: 2011Q4

REPORT INFORMATION
  Report Type: 
  Country: None (occurrence: None)
  Receive Date: 20111118
  Receipt Date: 20111111
  Transmission Date: 20120403
  Serious: Yes (Other)
  Sender: FDA-Public Use
  Company Number: DE-B.I. PHARMACEUTICALS,INC./RIDGEFIELD-2011-EU-00340GD

PATIENT
  Sex: Female

DRUGS (1)
  1. PRAMIPEXOLE DIHYDROCHLORIDE [Suspect]
     Indication: RESTLESS LEGS SYNDROME
     Dosage: 0.95 MG

REACTIONS (4)
  - PATHOLOGICAL GAMBLING [None]
  - IMPULSE-CONTROL DISORDER [None]
  - BINGE EATING [None]
  - HYPERSEXUALITY [None]
